FAERS Safety Report 4574050-9 (Version None)
Quarter: 2005Q1

REPORT INFORMATION
  Report Type: 
  Country: None (occurrence: None)
  Receive Date: 20050204
  Receipt Date: 20050121
  Transmission Date: 20050727
  Serious: Yes (Life-Threatening, Other)
  Sender: FDA-Public Use
  Company Number: 2004109556

PATIENT
  Sex: Female

DRUGS (2)
  1. CELEBREX [Suspect]
     Indication: PAIN
     Dosage: (200 MG), ORAL
     Route: 048
     Dates: start: 20030701
  2. NAPROXEN SODIUM [Suspect]
     Indication: ILL-DEFINED DISORDER

REACTIONS (1)
  - RENAL FAILURE [None]
